FAERS Safety Report 5954090-5 (Version None)
Quarter: 2008Q4

REPORT INFORMATION
  Report Type: 
  Country: None (occurrence: None)
  Receive Date: 20081114
  Receipt Date: 20081105
  Transmission Date: 20090506
  Serious: Yes (Hospitalization, Disabling, Other)
  Sender: FDA-Public Use
  Company Number: US-MERCK-0605USA04642

PATIENT
  Age: 61 Year
  Sex: Female

DRUGS (6)
  1. FOSAMAX [Suspect]
     Indication: OSTEOPOROSIS
     Route: 048
     Dates: start: 20000101, end: 20050501
  2. FOSAMAX [Suspect]
     Route: 048
     Dates: start: 19960902
  3. FOSAMAX [Suspect]
     Route: 065
     Dates: start: 20000901
  4. SYNTHROID [Concomitant]
     Indication: HYPOTHYROIDISM
     Route: 065
     Dates: start: 19750101
  5. CALCIUM (UNSPECIFIED) [Concomitant]
     Route: 065
  6. LEVAQUIN [Concomitant]
     Route: 065

REACTIONS (16)
  - ANXIETY [None]
  - DEPRESSION [None]
  - FISTULA DISCHARGE [None]
  - HAEMORRHOIDS [None]
  - HYPERCHOLESTEROLAEMIA [None]
  - HYPERLIPIDAEMIA [None]
  - JAW DISORDER [None]
  - MYALGIA [None]
  - NAUSEA [None]
  - ORAL HERPES [None]
  - OSTEOMYELITIS [None]
  - OSTEONECROSIS [None]
  - PAIN [None]
  - SUICIDAL IDEATION [None]
  - TOOTH INFECTION [None]
  - WEIGHT DECREASED [None]
